FAERS Safety Report 7898744-2 (Version None)
Quarter: 2011Q4

REPORT INFORMATION
  Report Type: 
  Country: None (occurrence: None)
  Receive Date: 20111103
  Receipt Date: 20111031
  Transmission Date: 20120403
  Serious: Yes (Other)
  Sender: FDA-Public Use
  Company Number: PD 153

PATIENT
  Age: 32 Year
  Sex: Female

DRUGS (2)
  1. DESLORATADINE [Suspect]
     Indication: RHINITIS
  2. CETIRIZINE [Suspect]
     Indication: URTICARIA

REACTIONS (2)
  - ERYTHEMA [None]
  - RASH PRURITIC [None]
